FAERS Safety Report 5262464-3 (Version None)
Quarter: 2007Q1

REPORT INFORMATION
  Report Type: 
  Country: None (occurrence: None)
  Receive Date: 20070309
  Receipt Date: 20070309
  Transmission Date: 20070707
  Serious: Yes (Life-Threatening, Hospitalization)
  Sender: FDA-Public Use
  Company Number: None

PATIENT
  Sex: Female

DRUGS (1)
  1. TELITHROMYCIN [Suspect]

REACTIONS (6)
  - COAGULOPATHY [None]
  - HEPATIC FAILURE [None]
  - HEPATITIS [None]
  - HEPATITIS VIRAL [None]
  - IMMUNE SYSTEM DISORDER [None]
  - RENAL FAILURE [None]
